FAERS Safety Report 22098232 (Version 4)
Quarter: 2023Q1

REPORT INFORMATION
  Report Type: Report from Study
  Country: PT (occurrence: PT)
  Receive Date: 20230315
  Receipt Date: 20230324
  Transmission Date: 20230417
  Serious: Yes (Death, Hospitalization, Other)
  Sender: FDA-Public Use
  Company Number: PT-ABBVIE-4321808

PATIENT
  Age: 71 Year
  Sex: Female

DRUGS (10)
  1. CARBIDOPA\LEVODOPA [Suspect]
     Active Substance: CARBIDOPA\LEVODOPA
     Indication: Parkinson^s disease
     Dosage: 20 MG + 5 MG?FREQUENCY TEXT: MORN:12CC(+5CC);MAIN:4.6CC/H;EXTRA:1CC?LAST ADMIN DATE: 2023
     Route: 050
     Dates: start: 20230112
  2. CARBIDOPA\LEVODOPA [Suspect]
     Active Substance: CARBIDOPA\LEVODOPA
     Dosage: 20 MG + 5 M?FREQUENCY TEXT: MORN:15CC;MAIN:6.5CC/H;EXTRA:2CC
     Route: 050
     Dates: start: 2023, end: 20230308
  3. CARBIDOPA\LEVODOPA [Suspect]
     Active Substance: CARBIDOPA\LEVODOPA
     Dosage: 20 MG + 5 MG?FREQUENCY TEXT: MORN:16CC;MAIN:6.5CC/H;EXTRA:2CC
     Route: 050
     Dates: start: 2023, end: 2023
  4. CARBIDOPA\LEVODOPA [Suspect]
     Active Substance: CARBIDOPA\LEVODOPA
     Dosage: 20 MG + 5 MG?MORN:13CC;MAIN:6.5CC/H;EXTRA:2CC
     Route: 050
     Dates: start: 20230308, end: 20230309
  5. CARBIDOPA\LEVODOPA [Suspect]
     Active Substance: CARBIDOPA\LEVODOPA
     Dosage: 20 MG + 5 MG?MORN:13CC;MAIN:6.5CC/H;EXTRA:2CC
     Route: 050
     Dates: start: 20230310, end: 20230316
  6. DIAZEPAM [Concomitant]
     Active Substance: DIAZEPAM
     Indication: Product used for unknown indication
     Dosage: 1 TABLET?FORM STRENGTH: 10 MILLIGRAM ?START DATE: BEFORE DUODOPA?FREQUENCY: AT BEDTIME
     Route: 048
  7. MIRTAZAPINE [Concomitant]
     Active Substance: MIRTAZAPINE
     Indication: Product used for unknown indication
     Dosage: 3 TABLET?FORM STRENGTH: 15 MILLIGRAM ?FREQUENCY: AT DINNER?START DATE: BEFORE DUODOPA
     Route: 048
  8. CARBIDOPA AND LEVODOPA [Concomitant]
     Active Substance: CARBIDOPA\LEVODOPA
     Indication: Parkinson^s disease
     Dosage: 200+50MG?FREQUENCY: 1.5 TABLET AT BEDTIME?START DATE: BEFORE DUODOPA
     Route: 048
  9. CLOZAPINE [Concomitant]
     Active Substance: CLOZAPINE
     Indication: Product used for unknown indication
     Dosage: 4 TABLET?FORM STRENGTH: 25 MILLIGRAM, ?START DATE: BEFORE DUODOPA?AT BEDTIME
     Route: 048
  10. DOMPERIDONE [Concomitant]
     Active Substance: DOMPERIDONE
     Indication: Product used for unknown indication
     Dosage: TIME INTERVAL: 0.33333333 DAYS: FORM STRENGTH: 10 MILLIGRAM?START DATE: BEFORE DUODOPA
     Route: 048

REACTIONS (21)
  - Pneumonia [Fatal]
  - Obstructive airways disorder [Fatal]
  - Hypoxia [Recovered/Resolved]
  - Wheezing [Recovering/Resolving]
  - Respiratory tract infection [Recovering/Resolving]
  - Decubitus ulcer [Not Recovered/Not Resolved]
  - Blood lactate dehydrogenase increased [Not Recovered/Not Resolved]
  - Haematocrit decreased [Not Recovered/Not Resolved]
  - Haemoglobin decreased [Not Recovered/Not Resolved]
  - Cyanosis [Recovered/Resolved]
  - C-reactive protein increased [Not Recovered/Not Resolved]
  - Increased bronchial secretion [Fatal]
  - Hypercapnia [Recovered/Resolved]
  - Parkinson^s disease [Fatal]
  - Brain natriuretic peptide increased [Not Recovered/Not Resolved]
  - Dyskinesia [Recovering/Resolving]
  - Chronic respiratory disease [Recovering/Resolving]
  - Hyperhidrosis [Recovered/Resolved]
  - Hypotension [Recovering/Resolving]
  - Acute pulmonary oedema [Recovered/Resolved]
  - Fatigue [Recovering/Resolving]

NARRATIVE: CASE EVENT DATE: 20230226
